FAERS Safety Report 12852317 (Version 1)
Quarter: 2016Q4

REPORT INFORMATION
  Report Type: Spontaneous
  Country: US (occurrence: US)
  Receive Date: 20161015
  Receipt Date: 20161015
  Transmission Date: 20170207
  Serious: Yes (Disabling)
  Sender: FDA-Public Use
  Company Number: None

PATIENT
  Age: 67 Year
  Sex: Female
  Weight: 67.5 kg

DRUGS (1)
  1. ATORVASTATIN [Suspect]
     Active Substance: ATORVASTATIN
     Indication: BLOOD CHOLESTEROL INCREASED
     Dosage: ?          QUANTITY:120 TABLET(S);?
     Route: 048

REACTIONS (4)
  - Muscular weakness [None]
  - Blood creatine phosphokinase increased [None]
  - Insomnia [None]
  - Myalgia [None]

NARRATIVE: CASE EVENT DATE: 20160610
